FAERS Safety Report 7257092-4 (Version None)
Quarter: 2011Q1

REPORT INFORMATION
  Report Type: 
  Country: None (occurrence: None)
  Receive Date: 20110129
  Receipt Date: 20100813
  Transmission Date: 20110831
  Serious: No
  Sender: FDA-Public Use
  Company Number: US-ABBOTT-10P-163-0664449-00

PATIENT
  Sex: Male
  Weight: 81.72 kg

DRUGS (9)
  1. HUMIRA [Suspect]
     Indication: PSORIATIC ARTHROPATHY
  2. FISH OIL [Concomitant]
     Indication: PRODUCT USED FOR UNKNOWN INDICATION
  3. ASPIRIN [Concomitant]
     Indication: PRODUCT USED FOR UNKNOWN INDICATION
  4. CRESTOR [Concomitant]
     Indication: BLOOD CHOLESTEROL INCREASED
     Dates: start: 20090101, end: 20100601
  5. HUMIRA [Suspect]
     Indication: PSORIASIS
  6. PLAVIX [Concomitant]
     Indication: CORONARY ARTERIAL STENT INSERTION
  7. CRESTOR [Concomitant]
     Indication: CORONARY ARTERY DISEASE
  8. METOPROLOL [Concomitant]
     Indication: CORONARY ARTERIAL STENT INSERTION
  9. NEXIUM [Concomitant]
     Indication: GASTROOESOPHAGEAL REFLUX DISEASE

REACTIONS (5)
  - PAIN IN EXTREMITY [None]
  - BLOOD CREATININE INCREASED [None]
  - PAIN [None]
  - VITAMIN D DECREASED [None]
  - ARTHRALGIA [None]
